FAERS Safety Report 24177140 (Version 1)
Quarter: 2024Q3

REPORT INFORMATION
  Report Type: Spontaneous
  Country: US (occurrence: US)
  Receive Date: 20240806
  Receipt Date: 20240806
  Transmission Date: 20241017
  Serious: Yes (Hospitalization, Other)
  Sender: AMNEAL
  Company Number: US-AMNEAL-2024-AMRX-00446

PATIENT
  Age: 35 Year
  Sex: Male
  Weight: 145.2 kg

DRUGS (1)
  1. BACLOFEN [Suspect]
     Active Substance: BACLOFEN
     Indication: Product used for unknown indication
     Dosage: DOSE PER DAY - DRUG 1: BACLOFEN 199.86988 MCG/DAY
     Route: 037
     Dates: start: 20240105

REACTIONS (3)
  - Muscle spasticity [Recovered/Resolved with Sequelae]
  - Pain in extremity [Recovered/Resolved with Sequelae]
  - Headache [Recovered/Resolved with Sequelae]

NARRATIVE: CASE EVENT DATE: 20240117
